FAERS Safety Report 25971738 (Version 2)
Quarter: 2025Q4

REPORT INFORMATION
  Report Type: Report from Study
  Country: US (occurrence: US)
  Receive Date: 20251029
  Receipt Date: 20251203
  Transmission Date: 20260118
  Serious: Yes (Other)
  Sender: ALEXION PHARMACEUTICALS
  Company Number: US-AstraZeneca-CH-00976425A

PATIENT
  Sex: Female

DRUGS (1)
  1. ULTOMIRIS [Suspect]
     Active Substance: RAVULIZUMAB-CWVZ
     Indication: Myasthenia gravis
     Dosage: UNK
     Route: 065

REACTIONS (14)
  - Oxygen saturation decreased [Unknown]
  - Headache [Unknown]
  - Dyspnoea [Unknown]
  - Pain in extremity [Unknown]
  - Hypoaesthesia [Unknown]
  - Nasal congestion [Unknown]
  - Paraesthesia oral [Unknown]
  - Cyanosis [Unknown]
  - Respiratory muscle weakness [Unknown]
  - Inflammation [Unknown]
  - Immune system disorder [Unknown]
  - Limb discomfort [Unknown]
  - Dysarthria [Unknown]
  - Muscular weakness [Unknown]
